FAERS Safety Report 6431758-8 (Version None)
Quarter: 2009Q4

REPORT INFORMATION
  Report Type: 
  Country: None (occurrence: None)
  Receive Date: 20091104
  Receipt Date: 20091022
  Transmission Date: 20100525
  Serious: Yes (Hospitalization)
  Sender: FDA-Public Use
  Company Number: 002040

PATIENT
  Sex: Male
  Weight: 77 kg

DRUGS (4)
  1. NEUPRO [Suspect]
     Indication: PARKINSON'S DISEASE
     Dosage: (2 MG QD TRANSDERMAL), (4 MG QD TRANSDERMAL)
     Route: 062
     Dates: start: 20090121, end: 20090401
  2. NEUPRO [Suspect]
     Indication: PARKINSON'S DISEASE
     Dosage: (2 MG QD TRANSDERMAL), (4 MG QD TRANSDERMAL)
     Route: 062
     Dates: start: 20090402
  3. SOTALOL HCL [Concomitant]
  4. LEVODOPA COMP B [Concomitant]

REACTIONS (3)
  - COMMINUTED FRACTURE [None]
  - FEMUR FRACTURE [None]
  - HUMERUS FRACTURE [None]
